FAERS Safety Report 5207342-0 (Version None)
Quarter: 2007Q1

REPORT INFORMATION
  Report Type: 
  Country: None (occurrence: None)
  Receive Date: 20070110
  Receipt Date: 20061228
  Transmission Date: 20070707
  Serious: Yes (Death, Hospitalization)
  Sender: FDA-Public Use
  Company Number: CERZ-10644

PATIENT
  Age: 6 Year
  Sex: Male
  Weight: 17 kg

DRUGS (4)
  1. CEREZYME [Suspect]
     Indication: GAUCHER'S DISEASE
     Dosage: 120 U/KG Q2WKS; IV
     Route: 042
     Dates: end: 20061208
  2. CEREZYME [Suspect]
     Indication: GAUCHER'S DISEASE
     Dosage: 60 U/KG QWK; IV
     Route: 042
  3. CEREZYME [Suspect]
     Indication: GAUCHER'S DISEASE
     Dosage: 60 UG/KG Q2WKS; IV
     Route: 042
     Dates: start: 19990701
  4. CEREZYME [Suspect]
     Indication: GAUCHER'S DISEASE
     Dates: start: 19990101, end: 19990701

REACTIONS (2)
  - MYOCLONIC EPILEPSY [None]
  - STATUS EPILEPTICUS [None]
